FAERS Safety Report 9698162 (Version 1)
Quarter: 2013Q4

REPORT INFORMATION
  Report Type: Spontaneous
  Country: PE (occurrence: PE)
  Receive Date: 20131120
  Receipt Date: 20131120
  Transmission Date: 20140711
  Serious: Yes (Death)
  Sender: FDA-Public Use
  Company Number: PE-ROCHE-1306321

PATIENT
  Age: 64 Year
  Sex: Male

DRUGS (4)
  1. ACTILYSE [Suspect]
     Indication: ACUTE MYOCARDIAL INFARCTION
     Route: 042
     Dates: start: 20131113, end: 20131113
  2. PETHIDINE [Concomitant]
  3. NITROGLYCERINE [Concomitant]
  4. ATENOLOL [Concomitant]

REACTIONS (1)
  - Infarction [Fatal]
